FAERS Safety Report 5015513-1 (Version None)
Quarter: 2006Q2

REPORT INFORMATION
  Report Type: 
  Country: None (occurrence: None)
  Receive Date: 20060526
  Receipt Date: 20060519
  Transmission Date: 20061013
  Serious: Yes (Death, Life-Threatening)
  Sender: FDA-Public Use
  Company Number: TCI2006A00964

PATIENT
  Age: 81 Year
  Sex: Male

DRUGS (9)
  1. TAKEPRON OD TABLETS 30 (LANSOPRAZOLE) [Suspect]
     Indication: GASTRIC ULCER HAEMORRHAGE
     Dosage: 30 MG (30 MG, 1 IN 1 D), PER ORAL
     Route: 048
     Dates: start: 20051012, end: 20051121
  2. LEUPLIN SR FOR INJECTION KIT 11.25 (LEUPRORELIN ACETATE FOR DEPOT SUSP [Suspect]
     Indication: PROSTATE CANCER
     Dosage: 11.25 MG (11.25 MG, 1 IN 12 WK) SUBCUTANEOUS
     Route: 058
     Dates: start: 20040729
  3. CASODEX [Suspect]
     Indication: PROSTATE CANCER
     Dosage: 80 MG PER ORAL
     Route: 048
     Dates: start: 20040217, end: 20051011
  4. MUCOSTA (REBAMIPIDE) [Concomitant]
  5. SUCRALFATE [Concomitant]
  6. APLACE (TROXIPIDE) [Concomitant]
  7. SOLCOSERYL (BLOOD, CALF, DEPRTO., LMW PORTION) [Concomitant]
  8. AMINOFLUID (AMINOFLUID) [Concomitant]
  9. PESIN (SACCHARATED IRON OXIDE) [Concomitant]

REACTIONS (5)
  - ANAEMIA [None]
  - CARDIAC FAILURE [None]
  - INTERSTITIAL LUNG DISEASE [None]
  - PULMONARY OEDEMA [None]
  - RESPIRATORY FAILURE [None]
